FAERS Safety Report 5082963-7 (Version None)
Quarter: 2006Q3

REPORT INFORMATION
  Report Type: 
  Country: None (occurrence: None)
  Receive Date: 20060720
  Receipt Date: 20060426
  Transmission Date: 20061208
  Serious: Yes (Hospitalization)
  Sender: FDA-Public Use
  Company Number: 2006058133

PATIENT
  Age: 58 Year
  Sex: Female
  Weight: 78.4723 kg

DRUGS (1)
  1. CELEBREX [Suspect]
     Indication: ARTHRITIS
     Dosage: 400 MEQ (200 MG,2 IN 1 D)
     Dates: start: 19990101

REACTIONS (1)
  - CEREBROVASCULAR ACCIDENT [None]
